FAERS Safety Report 16250642 (Version 1)
Quarter: 2019Q2

REPORT INFORMATION
  Report Type: Spontaneous
  Country: JP (occurrence: JP)
  Receive Date: 20190429
  Receipt Date: 20190429
  Transmission Date: 20190711
  Serious: Yes (Death, Life-Threatening, Other)
  Sender: FDA-Public Use
  Company Number: JP-ACTELION-A-CH2019-189425

PATIENT
  Age: 60 Year
  Sex: Female

DRUGS (3)
  1. METHYLPREDNISOLONE. [Suspect]
     Active Substance: METHYLPREDNISOLONE
     Indication: SYSTEMIC LUPUS ERYTHEMATOSUS
     Dosage: 36 MG
     Route: 042
  2. TADALAFIL. [Suspect]
     Active Substance: TADALAFIL
     Indication: PULMONARY HYPERTENSION
     Dosage: 20 MG
     Route: 048
  3. OPSUMIT [Suspect]
     Active Substance: MACITENTAN
     Indication: PULMONARY HYPERTENSION
     Dosage: 10 MG
     Route: 048

REACTIONS (17)
  - Vasculitis necrotising [Fatal]
  - Cerebrovascular disorder [Fatal]
  - Concomitant disease aggravated [Fatal]
  - Blood beta-D-glucan increased [Fatal]
  - Subarachnoid haemorrhage [Fatal]
  - Brain oedema [Fatal]
  - Brain herniation [Fatal]
  - Bloody discharge [Unknown]
  - Transfusion [Unknown]
  - Colon adenoma [Unknown]
  - Blood pressure decreased [Unknown]
  - Aspergillus infection [Fatal]
  - Cardio-respiratory arrest [Fatal]
  - Cerebral haemorrhage [Fatal]
  - Haematoma [Fatal]
  - Partial seizures [Fatal]
  - Coma [Fatal]
